FAERS Safety Report 10213574 (Version 1)
Quarter: 2014Q2

REPORT INFORMATION
  Report Type: Spontaneous
  Country: US (occurrence: None)
  Receive Date: 20140529
  Receipt Date: 20140529
  Transmission Date: 20141212
  Serious: Yes (Other)
  Sender: FDA-Public Use
  Company Number: 1375872

PATIENT
  Age: 11 Year
  Sex: Female

DRUGS (1)
  1. POCKETBAC ANTIBACTERIAL HAND GEL [Suspect]
     Indication: INFECTION PROPHYLAXIS
     Route: 061

REACTIONS (4)
  - Swollen tongue [None]
  - Lip swelling [None]
  - Pharyngeal oedema [None]
  - Anaphylactic reaction [None]
